FAERS Safety Report 5410141-8 (Version None)
Quarter: 2007Q3

REPORT INFORMATION
  Report Type: 
  Country: None (occurrence: None)
  Receive Date: 20070713
  Receipt Date: 20070406
  Transmission Date: 20080115
  Serious: No
  Sender: FDA-Public Use
  Company Number: 2007SP001248

PATIENT
  Age: 55 Year
  Sex: Male

DRUGS (10)
  1. LUNESTA [Suspect]
     Indication: INSOMNIA
     Dosage: 3 MG;HS;ORAL; 9 MG;HS;ORAL
     Route: 048
     Dates: start: 20070327, end: 20070101
  2. LUNESTA [Suspect]
     Indication: INSOMNIA
     Dosage: 3 MG;HS;ORAL; 9 MG;HS;ORAL
     Route: 048
     Dates: start: 20070101
  3. VENLAFAXINE HCL [Concomitant]
  4. TRAMADOL HCL [Concomitant]
  5. NAPROXEN [Concomitant]
  6. NORCO [Concomitant]
  7. DEXTROPROPOXYPHENE [Concomitant]
  8. CELEBREX [Concomitant]
  9. VICODIN [Concomitant]
  10. FLEXERIL [Concomitant]

REACTIONS (2)
  - DRUG INEFFECTIVE [None]
  - INSOMNIA [None]
